FAERS Safety Report 8167274-5 (Version None)
Quarter: 2012Q1

REPORT INFORMATION
  Report Type: 
  Country: None (occurrence: None)
  Receive Date: 20120221
  Receipt Date: 20120207
  Transmission Date: 20120608
  Serious: Yes (Other)
  Sender: FDA-Public Use
  Company Number: AXC-2012-000002

PATIENT
  Age: 61 Year
  Sex: Male
  Weight: 63.5 kg

DRUGS (2)
  1. ZENPEP [Suspect]
     Indication: GASTROOESOPHAGEAL REFLUX DISEASE
     Dosage: 20,000 USP, 2-4 TIMES DAILY, ORAL
     Route: 048
     Dates: start: 20111001
  2. ZENPEP [Suspect]
     Indication: DYSPEPSIA
     Dosage: 20,000 USP, 2-4 TIMES DAILY, ORAL
     Route: 048
     Dates: start: 20111001

REACTIONS (1)
  - CARBOHYDRATE ANTIGEN 19-9 INCREASED [None]
